FAERS Safety Report 5588925-5 (Version None)
Quarter: 2007Q4

REPORT INFORMATION
  Report Type: 
  Country: None (occurrence: None)
  Receive Date: 20071212
  Receipt Date: 20070919
  Transmission Date: 20080405
  Serious: No
  Sender: FDA-Public Use
  Company Number: 2007RL000411

PATIENT
  Age: 85 Year
  Sex: Female

DRUGS (3)
  1. LOVAZA [Suspect]
     Indication: BLOOD CHOLESTEROL
     Dosage: 4 GM;QD;PO ; 2 GM;QD;PO
     Route: 048
     Dates: start: 20070701, end: 20070901
  2. WELCHOL [Concomitant]
  3. ^BLOOD PRESSURE PILL^ [Concomitant]

REACTIONS (6)
  - DYSPHONIA [None]
  - OFF LABEL USE [None]
  - PAIN IN EXTREMITY [None]
  - SINUSITIS [None]
  - THROAT IRRITATION [None]
  - TREATMENT NONCOMPLIANCE [None]
